FAERS Safety Report 18019641 (Version 1)
Quarter: 2020Q3

REPORT INFORMATION
  Report Type: Spontaneous
  Country: CA (occurrence: CA)
  Receive Date: 20200714
  Receipt Date: 20200714
  Transmission Date: 20201103
  Serious: Yes (Life-Threatening, Hospitalization, Other)
  Sender: FDA-Public Use
  Company Number: CA-ACCORD-190109

PATIENT
  Age: 16 Year
  Sex: Male

DRUGS (18)
  1. PARACETAMOL [Concomitant]
     Active Substance: ACETAMINOPHEN
  2. INSULIN [Concomitant]
     Active Substance: INSULIN NOS
  3. MYCOPHENOLIC ACID. [Suspect]
     Active Substance: MYCOPHENOLIC ACID
     Indication: RENAL TRANSPLANT
  4. TACROLIMUS. [Suspect]
     Active Substance: TACROLIMUS
     Indication: PRODUCT USED FOR UNKNOWN INDICATION
  5. PREDNISONE. [Suspect]
     Active Substance: PREDNISONE
     Indication: RENAL TRANSPLANT
     Dosage: FREQUENCY: 1 EVERY 1 DAYS
     Route: 048
  6. DOXORUBICIN HYDROCHLORIDE. [Concomitant]
     Active Substance: DOXORUBICIN HYDROCHLORIDE
  7. METHYLPREDNISOLONE. [Concomitant]
     Active Substance: METHYLPREDNISOLONE
  8. MYCOPHENOLIC ACID. [Suspect]
     Active Substance: MYCOPHENOLIC ACID
     Indication: RENAL TRANSPLANT
     Dosage: FREQUENCY: 1 EVERY 1 DAYS
  9. DIPHENHYDRAMINE. [Concomitant]
     Active Substance: DIPHENHYDRAMINE
  10. METHYLPREDNISOLONE. [Suspect]
     Active Substance: METHYLPREDNISOLONE
     Indication: RENAL TRANSPLANT
  11. MYCOPHENOLIC ACID. [Suspect]
     Active Substance: MYCOPHENOLIC ACID
     Indication: RENAL TRANSPLANT
  12. PREDNISONE. [Suspect]
     Active Substance: PREDNISONE
     Indication: RENAL TRANSPLANT
     Dosage: FREQUENCY: 1 EVERY 1 DAYS
     Route: 048
  13. SIMULECT [Suspect]
     Active Substance: BASILIXIMAB
     Indication: RENAL TRANSPLANT
     Dosage: DOSE:12.0 MG/M2
  14. SIMULECT [Suspect]
     Active Substance: BASILIXIMAB
     Indication: RENAL TRANSPLANT
  15. AMPHOTERICIN B/AMPHOTERICIN B/LIPOSOME [Suspect]
     Active Substance: AMPHOTERICIN B
     Indication: MUCORMYCOSIS
     Dosage: FREQUENCY: 1 EVERY 1 DAYS
     Route: 042
  16. METHYLPREDNISOLONE. [Suspect]
     Active Substance: METHYLPREDNISOLONE
     Indication: RENAL TRANSPLANT
     Dosage: FREQUENCY: 4 EVERY 1 DAYS
  17. CEFALEXIN [Concomitant]
     Active Substance: CEPHALEXIN
  18. POSANOL [Concomitant]
     Active Substance: POSACONAZOLE

REACTIONS (15)
  - Flushing [Unknown]
  - Nephropathy toxic [Unknown]
  - Tachycardia [Unknown]
  - Overdose [Unknown]
  - Device related infection [Unknown]
  - Hyperglycaemia [Unknown]
  - Renal tubular necrosis [Unknown]
  - Polyomavirus-associated nephropathy [Unknown]
  - Mucormycosis [Unknown]
  - Renal injury [Unknown]
  - Cellulitis [Unknown]
  - Chest discomfort [Unknown]
  - Fungal skin infection [Unknown]
  - Hypotension [Unknown]
  - Skin necrosis [Unknown]
